FAERS Safety Report 8180769-3 (Version None)
Quarter: 2012Q1

REPORT INFORMATION
  Report Type: 
  Country: None (occurrence: None)
  Receive Date: 20120302
  Receipt Date: 20120229
  Transmission Date: 20120608
  Serious: Yes (Other)
  Sender: FDA-Public Use
  Company Number: US-PFIZER INC-2012054341

PATIENT
  Sex: Female
  Weight: 89.796 kg

DRUGS (1)
  1. LIPITOR [Suspect]
     Indication: BLOOD CHOLESTEROL INCREASED
     Dosage: 80 MG, 1X/DAY
     Route: 048

REACTIONS (7)
  - FATIGUE [None]
  - HEADACHE [None]
  - MALAISE [None]
  - HEAD DISCOMFORT [None]
  - CONFUSIONAL STATE [None]
  - SOMNOLENCE [None]
  - VISION BLURRED [None]
